FAERS Safety Report 4526106-4 (Version None)
Quarter: 2004Q4

REPORT INFORMATION
  Report Type: 
  Country: None (occurrence: None)
  Receive Date: 20041213
  Receipt Date: 20041213
  Transmission Date: 20050328
  Serious: No
  Sender: FDA-Public Use
  Company Number: None

PATIENT
  Age: 71 Year
  Sex: Male
  Weight: 96.1626 kg

DRUGS (10)
  1. TENOFOVIR [Suspect]
     Indication: HIV INFECTION
     Dosage: 300MGM PO QD
     Route: 048
     Dates: start: 20020322, end: 20041020
  2. ZIAGEN [Concomitant]
  3. KALETRA [Concomitant]
  4. 3TC [Concomitant]
  5. VIREAD [Concomitant]
  6. TESTOSTERONE [Concomitant]
  7. CARVEDIOL [Concomitant]
  8. PROPECIA [Concomitant]
  9. LISINOPRIL [Concomitant]
  10. LIPITOR [Concomitant]

REACTIONS (1)
  - BLOOD CREATININE INCREASED [None]
